FAERS Safety Report 16955110 (Version 1)
Quarter: 2019Q4

REPORT INFORMATION
  Report Type: Spontaneous
  Country: US (occurrence: US)
  Receive Date: 20191024
  Receipt Date: 20191024
  Transmission Date: 20200122
  Serious: Yes (Other)
  Sender: FDA-Public Use
  Company Number: US-EMD SERONO-9124430

PATIENT
  Sex: Female

DRUGS (3)
  1. OVIDREL [Suspect]
     Active Substance: CHORIOGONADOTROPIN ALFA
     Indication: CONTROLLED OVARIAN STIMULATION
  2. LUPRON [Concomitant]
     Active Substance: LEUPROLIDE ACETATE
     Indication: CONTROLLED OVARIAN STIMULATION
  3. GONAL-F [Suspect]
     Active Substance: FOLLITROPIN
     Indication: CONTROLLED OVARIAN STIMULATION

REACTIONS (1)
  - Ovarian hyperstimulation syndrome [Recovered/Resolved]
